FAERS Safety Report 5672354-X (Version None)
Quarter: 2008Q1

REPORT INFORMATION
  Report Type: 
  Country: None (occurrence: None)
  Receive Date: 20080318
  Receipt Date: 20080318
  Transmission Date: 20080703
  Serious: Yes (Other)
  Sender: FDA-Public Use
  Company Number: None

PATIENT
  Age: 52 Year
  Sex: Female
  Weight: 68.0396 kg

DRUGS (1)
  1. CHANTIX [Suspect]
     Indication: SMOKER
     Dosage: VARIED 1 OR 2 DAILY PO
     Route: 048
     Dates: start: 20080221, end: 20080308

REACTIONS (18)
  - ABNORMAL DREAMS [None]
  - ASTHENIA [None]
  - CONSTIPATION [None]
  - DEPRESSION [None]
  - DIZZINESS [None]
  - DYSPNOEA [None]
  - EAR PAIN [None]
  - EPISTAXIS [None]
  - FLUID RETENTION [None]
  - GINGIVAL BLEEDING [None]
  - IMPAIRED WORK ABILITY [None]
  - INFECTION [None]
  - INSOMNIA [None]
  - NAUSEA [None]
  - PHARYNGOLARYNGEAL PAIN [None]
  - RHINORRHOEA [None]
  - TINNITUS [None]
  - VISION BLURRED [None]
